FAERS Safety Report 9210388 (Version 2)
Quarter: 2014Q1

REPORT INFORMATION
  Report Type: Spontaneous
  Country: US (occurrence: US)
  Receive Date: 20130404
  Receipt Date: 20140203
  Transmission Date: 20141002
  Serious: Yes (Other)
  Sender: FDA-Public Use
  Company Number: US-BAYER-2013-039264

PATIENT
  Age: 24 Year
  Sex: Female

DRUGS (2)
  1. YAZ [Suspect]
     Indication: ACNE
     Dosage: UNK
  2. YASMIN [Suspect]
     Indication: ACNE
     Dosage: UNK

REACTIONS (3)
  - Gallbladder non-functioning [None]
  - Injury [None]
  - Cholecystitis chronic [None]
